FAERS Safety Report 9245099 (Version 1)
Quarter: 2013Q1

REPORT INFORMATION
  Report Type: Spontaneous
  Country: US (occurrence: None)
  Receive Date: 20121130
  Receipt Date: 20121130
  Transmission Date: 20140127
  Serious: Yes (Other)
  Sender: FDA-Public Use
  Company Number: PHEH2012US001192

PATIENT
  Age: 62 Year
  Sex: Female

DRUGS (3)
  1. TEKTURNA [Suspect]
     Dosage: UNK
  2. DIOVAN [Suspect]
     Dosage: UNK
  3. CALCIUM BLOCKER [Concomitant]

REACTIONS (2)
  - Blood pressure decreased [None]
  - Dizziness [None]
